FAERS Safety Report 4558895-7 (Version None)
Quarter: 2005Q1

REPORT INFORMATION
  Report Type: 
  Country: None (occurrence: None)
  Receive Date: 20050121
  Receipt Date: 20050121
  Transmission Date: 20050727
  Serious: Yes (Hospitalization)
  Sender: FDA-Public Use
  Company Number: None

PATIENT
  Age: 61 Year
  Sex: Female
  Weight: 72 kg

DRUGS (9)
  1. ALTACE [Suspect]
     Indication: HYPERTENSION
     Dosage: 5MG  DAILY ORAL
     Route: 048
  2. DIGITEK [Concomitant]
  3. TRICOR [Concomitant]
  4. SOTALOL HCL [Concomitant]
  5. EFFEXOR [Concomitant]
  6. METFORMIN HCL [Concomitant]
  7. PROTONIX [Concomitant]
  8. GLIPIZIDE [Concomitant]
  9. PLAVIX [Concomitant]

REACTIONS (2)
  - ANGIONEUROTIC OEDEMA [None]
  - HYPERSENSITIVITY [None]
